FAERS Safety Report 23409026 (Version 1)
Quarter: 2024Q1

REPORT INFORMATION
  Report Type: Spontaneous
  Country: IT (occurrence: IT)
  Receive Date: 20240117
  Receipt Date: 20240117
  Transmission Date: 20240409
  Serious: Yes (Hospitalization)
  Sender: FDA-Public Use
  Company Number: IT-GTI-000097

PATIENT
  Age: 13 Year
  Sex: Female
  Weight: 51 kg

DRUGS (5)
  1. PREDNISONE [Suspect]
     Active Substance: PREDNISONE
     Indication: Nephrotic syndrome
     Route: 048
  2. RAMIPRIL [Suspect]
     Active Substance: RAMIPRIL
     Indication: Nephroprotective therapy
     Route: 065
  3. MYCOPHENOLATE MOFETIL [Suspect]
     Active Substance: MYCOPHENOLATE MOFETIL
     Indication: Nephrotic syndrome
     Route: 065
  4. ECULIZUMAB [Suspect]
     Active Substance: ECULIZUMAB
     Indication: Nephrotic syndrome
     Route: 065
  5. TACROLIMUS [Suspect]
     Active Substance: TACROLIMUS
     Indication: Proteinuria
     Route: 065

REACTIONS (13)
  - Nephrotic syndrome [Recovered/Resolved]
  - C3 glomerulopathy [Recovered/Resolved]
  - Drug ineffective [Unknown]
  - Therapy non-responder [Unknown]
  - Off label use [Unknown]
  - Condition aggravated [Recovered/Resolved]
  - Oedema peripheral [Recovered/Resolved]
  - Proteinuria [Recovered/Resolved]
  - Weight increased [Unknown]
  - Body dysmorphic disorder [Unknown]
  - Glomerulonephritis membranoproliferative [Recovered/Resolved]
  - Renal impairment [Recovered/Resolved]
  - Hypertension [Unknown]
